FAERS Safety Report 8290139-5 (Version None)
Quarter: 2012Q1

REPORT INFORMATION
  Report Type: 
  Country: None (occurrence: None)
  Receive Date: 20120316
  Receipt Date: 20090210
  Transmission Date: 20120608
  Serious: Yes (Other)
  Sender: FDA-Public Use
  Company Number: PHEH2008US11237

PATIENT
  Age: 70 Year
  Sex: Female

DRUGS (1)
  1. TEKTURNA [Suspect]
     Indication: HYPERTENSION
     Dosage: 150 MG, QD
     Dates: start: 20081215

REACTIONS (3)
  - BLOOD PRESSURE SYSTOLIC INCREASED [None]
  - DRUG HYPERSENSITIVITY [None]
  - RASH [None]
